FAERS Safety Report 10772215 (Version 1)
Quarter: 2015Q1

REPORT INFORMATION
  Report Type: Spontaneous
  Country: FR (occurrence: FR)
  Receive Date: 20150206
  Receipt Date: 20150206
  Transmission Date: 20150721
  Serious: Yes (Other)
  Sender: FDA-Public Use
  Company Number: FR-ASTRAZENECA-2015SE11669

PATIENT
  Age: 530 Month
  Sex: Male
  Weight: 87 kg

DRUGS (9)
  1. TAVANIC [Suspect]
     Active Substance: LEVOFLOXACIN
     Route: 065
     Dates: start: 2014, end: 2014
  2. REYATAZ [Suspect]
     Active Substance: ATAZANAVIR SULFATE
     Indication: HIV INFECTION
     Route: 048
     Dates: start: 20081219, end: 201501
  3. NORVIR [Suspect]
     Active Substance: RITONAVIR
     Indication: HIV INFECTION
     Route: 048
     Dates: start: 20081219, end: 201501
  4. CRESTOR [Suspect]
     Active Substance: ROSUVASTATIN CALCIUM
     Indication: HYPERCHOLESTEROLAEMIA
     Route: 048
     Dates: start: 20131021
  5. PYOSTACINE [Concomitant]
     Active Substance: PRISTINAMYCIN
     Dates: start: 2014
  6. ZITHROMAX [Suspect]
     Active Substance: AZITHROMYCIN DIHYDRATE
     Route: 065
     Dates: start: 20140425
  7. ANSATIPINE [Suspect]
     Active Substance: RIFABUTIN
     Route: 065
     Dates: start: 20140425
  8. IZILOX [Suspect]
     Active Substance: MOXIFLOXACIN HYDROCHLORIDE
     Route: 065
     Dates: start: 20140425, end: 2014
  9. TRUVADA [Suspect]
     Active Substance: EMTRICITABINE\TENOFOVIR DISOPROXIL FUMARATE
     Indication: HIV INFECTION
     Route: 048
     Dates: start: 20081219, end: 201501

REACTIONS (6)
  - Thrombocytopenia [Recovered/Resolved]
  - Visual field defect [None]
  - Leukopenia [Recovered/Resolved]
  - Retinal injury [None]
  - Uveitis [Recovering/Resolving]
  - Chromaturia [Recovered/Resolved]

NARRATIVE: CASE EVENT DATE: 201405
